FAERS Safety Report 8588742-8 (Version None)
Quarter: 2012Q3

REPORT INFORMATION
  Report Type: 
  Country: None (occurrence: None)
  Receive Date: 20120813
  Receipt Date: 20120803
  Transmission Date: 20120928
  Serious: Yes (Other)
  Sender: FDA-Public Use
  Company Number: IE-JNJFOC-20120804122

PATIENT
  Age: 19 Year
  Sex: Male

DRUGS (2)
  1. OLANZAPINE [Concomitant]
     Indication: PRODUCT USED FOR UNKNOWN INDICATION
     Route: 048
  2. PALIPERIDONE [Suspect]
     Indication: PRODUCT USED FOR UNKNOWN INDICATION
     Dosage: MONTHLY DOSE
     Route: 030

REACTIONS (4)
  - MALAISE [None]
  - AGGRESSION [None]
  - HOSPITALISATION [None]
  - DRUG DOSE OMISSION [None]
